FAERS Safety Report 10941108 (Version 2)
Quarter: 2015Q2

REPORT INFORMATION
  Report Type: Spontaneous
  Country: US (occurrence: US)
  Receive Date: 20150322
  Receipt Date: 20150524
  Transmission Date: 20150821
  Serious: No
  Sender: FDA-Public Use
  Company Number: US-JNJFOC-20140707948

PATIENT
  Age: 64 Year
  Sex: Male

DRUGS (3)
  1. PIOGLITAZONE [Concomitant]
     Active Substance: PIOGLITAZONE
     Indication: TYPE 2 DIABETES MELLITUS
     Route: 065
  2. INVOKANA [Suspect]
     Active Substance: CANAGLIFLOZIN
     Indication: TYPE 2 DIABETES MELLITUS
     Route: 048
     Dates: start: 20140602
  3. VICTOZA [Concomitant]
     Active Substance: LIRAGLUTIDE
     Indication: TYPE 2 DIABETES MELLITUS
     Route: 065

REACTIONS (3)
  - Blood pressure decreased [Unknown]
  - Fungal infection [Unknown]
  - Genital infection fungal [Unknown]

NARRATIVE: CASE EVENT DATE: 2014
